FAERS Safety Report 17556759 (Version 1)
Quarter: 2020Q1

REPORT INFORMATION
  Report Type: Report from Study
  Country: US (occurrence: US)
  Receive Date: 20200318
  Receipt Date: 20200318
  Transmission Date: 20200409
  Serious: Yes (Other)
  Sender: FDA-Public Use
  Company Number: US-KYOWAKIRIN-2019BKK021068

PATIENT

DRUGS (1)
  1. CRYSVITA [Suspect]
     Active Substance: BUROSUMAB-TWZA
     Indication: PRODUCT USED FOR UNKNOWN INDICATION
     Dosage: UNK
     Route: 065

REACTIONS (9)
  - Joint stiffness [Not Recovered/Not Resolved]
  - Bone pain [Not Recovered/Not Resolved]
  - Knee deformity [Not Recovered/Not Resolved]
  - Myalgia [Not Recovered/Not Resolved]
  - Arthralgia [Not Recovered/Not Resolved]
  - Body height below normal [Not Recovered/Not Resolved]
  - Tooth abscess [Not Recovered/Not Resolved]
  - Rickets [Not Recovered/Not Resolved]
  - Gingival disorder [Not Recovered/Not Resolved]
